FAERS Safety Report 7349170-6 (Version None)
Quarter: 2011Q1

REPORT INFORMATION
  Report Type: 
  Country: None (occurrence: None)
  Receive Date: 20110314
  Receipt Date: 20110304
  Transmission Date: 20110831
  Serious: Yes (Other)
  Sender: FDA-Public Use
  Company Number: JP-BAYER-200811925BYL

PATIENT
  Age: 78 Year
  Sex: Male
  Weight: 61 kg

DRUGS (4)
  1. NEXAVAR [Suspect]
     Route: 048
     Dates: start: 20081002, end: 20081023
  2. MEVALOTIN [Concomitant]
     Indication: HYPERLIPIDAEMIA
     Dosage: DAILY DOSE 10 MG
     Route: 048
  3. NEXAVAR [Suspect]
     Indication: RENAL CELL CARCINOMA
     Dosage: DAILY DOSE 400 MG
     Route: 048
     Dates: start: 20080403, end: 20080821
  4. TAMSULOSIN HCL [Concomitant]
     Indication: PRODUCT USED FOR UNKNOWN INDICATION
     Dosage: DAILY DOSE .2 MG
     Route: 048

REACTIONS (5)
  - BLOOD AMYLASE INCREASED [None]
  - DYSPHONIA [None]
  - HYPOPHOSPHATAEMIA [None]
  - LIPASE INCREASED [None]
  - HEPATIC FUNCTION ABNORMAL [None]
